FAERS Safety Report 7656720-9 (Version None)
Quarter: 2011Q3

REPORT INFORMATION
  Report Type: 
  Country: None (occurrence: None)
  Receive Date: 20110801
  Receipt Date: 20110722
  Transmission Date: 20111222
  Serious: Yes (Death, Other)
  Sender: FDA-Public Use
  Company Number: 2010SP044546

PATIENT
  Age: 25 Year
  Sex: Female
  Weight: 63.5036 kg

DRUGS (3)
  1. NUVARING [Suspect]
     Indication: CONTRACEPTION
     Dates: start: 20091211, end: 20100101
  2. VISTARIL [Suspect]
     Indication: PANIC ATTACK
     Dosage: 25 MG;BID;PO
     Route: 048
  3. ZOLOFT [Suspect]
     Indication: PANIC ATTACK
     Dosage: 75 MG;QD;PO
     Route: 048
     Dates: start: 20091101

REACTIONS (12)
  - PANIC ATTACK [None]
  - ACUTE RESPIRATORY FAILURE [None]
  - ANXIETY [None]
  - SUBARACHNOID HAEMORRHAGE [None]
  - PULMONARY EMBOLISM [None]
  - DRUG INTOLERANCE [None]
  - TREMOR [None]
  - SUICIDAL IDEATION [None]
  - DEPRESSION [None]
  - MAJOR DEPRESSION [None]
  - BACK PAIN [None]
  - MUSCULOSKELETAL PAIN [None]
